FAERS Safety Report 7230006-9 (Version None)
Quarter: 2011Q1

REPORT INFORMATION
  Report Type: 
  Country: None (occurrence: None)
  Receive Date: 20110117
  Receipt Date: 20110113
  Transmission Date: 20110831
  Serious: Yes (Hospitalization)
  Sender: FDA-Public Use
  Company Number: GXKR2010DE14221

PATIENT
  Sex: Female
  Weight: 62 kg

DRUGS (1)
  1. CITALOPRAM HEXAL [Suspect]
     Dosage: 10 MG, UNK
     Route: 048
     Dates: start: 20101123, end: 20101214

REACTIONS (2)
  - RASH ERYTHEMATOUS [None]
  - SYSTEMIC LUPUS ERYTHEMATOSUS [None]
